FAERS Safety Report 8225149-7 (Version None)
Quarter: 2012Q1

REPORT INFORMATION
  Report Type: 
  Country: None (occurrence: None)
  Receive Date: 20120307
  Receipt Date: 20090921
  Transmission Date: 20120608
  Serious: No
  Sender: FDA-Public Use
  Company Number: PHEH2009US12270

PATIENT
  Age: 66 Year
  Sex: Male

DRUGS (9)
  1. COLCHICINE [Concomitant]
  2. ATROVENT [Concomitant]
  3. ALBUTEROL SULFATE [Concomitant]
  4. THEOPHYLLINE [Concomitant]
  5. ALLOPURINOL [Concomitant]
  6. AZMACORT [Concomitant]
  7. AFINITOR [Suspect]
     Dosage: 10 MG, ONE TIME A DAY
  8. PREVACID [Concomitant]
  9. FLUNISOLIDE (FLUNISOLIDE) [Concomitant]

REACTIONS (2)
  - INCREASED BRONCHIAL SECRETION [None]
  - COUGH [None]
